FAERS Safety Report 8794778 (Version 2)
Quarter: 2012Q4

REPORT INFORMATION
  Report Type: Report from Study
  Country: DE (occurrence: DE)
  Receive Date: 20120917
  Receipt Date: 20121015
  Transmission Date: 20130627
  Serious: Yes (Death, Hospitalization)
  Sender: FDA-Public Use
  Company Number: DE-ROCHE-1125299

PATIENT
  Sex: Female
  Weight: 63 kg

DRUGS (1)
  1. RITUXIMAB [Suspect]
     Indication: B-CELL LYMPHOMA
     Route: 042
     Dates: start: 20110921

REACTIONS (3)
  - Pain [Fatal]
  - Herpes zoster [Recovered/Resolved]
  - Pain [Recovered/Resolved]
